FAERS Safety Report 11138708 (Version 1)
Quarter: 2015Q2

REPORT INFORMATION
  Report Type: Spontaneous
  Country: AE (occurrence: GB)
  Receive Date: 20150527
  Receipt Date: 20150527
  Transmission Date: 20150821
  Serious: Yes (Hospitalization, Other)
  Sender: FDA-Public Use
  Company Number: GB-ACCORD-030708

PATIENT
  Age: 92 Year
  Sex: Male
  Weight: 71.45 kg

DRUGS (8)
  1. RAMIPRIL. [Suspect]
     Active Substance: RAMIPRIL
     Indication: PRODUCT USED FOR UNKNOWN INDICATION
  2. TIMOLOL [Concomitant]
     Active Substance: TIMOLOL
  3. TAMSULOSIN/TAMSULOSIN HYDROCHLORIDE [Concomitant]
  4. IRON [Concomitant]
     Active Substance: IRON
  5. CARBOMER [Concomitant]
     Active Substance: CARBOMER
  6. LANSOPRAZOLE. [Concomitant]
     Active Substance: LANSOPRAZOLE
  7. TRIMETHOPRIM/TRIMETHOPRIM LACTATE/TRIMETHOPRIM SULFATE [Suspect]
     Active Substance: TRIMETHOPRIM
     Indication: URINARY TRACT INFECTION
     Route: 048
     Dates: start: 20150423, end: 20150426
  8. CLOPIDOGREL [Concomitant]
     Active Substance: CLOPIDOGREL BISULFATE

REACTIONS (3)
  - Hyperkalaemia [Recovered/Resolved]
  - Lower respiratory tract infection [Unknown]
  - Acute kidney injury [Recovered/Resolved]

NARRATIVE: CASE EVENT DATE: 20150426
